FAERS Safety Report 21302054 (Version 2)
Quarter: 2025Q4

REPORT INFORMATION
  Report Type: Spontaneous
  Country: EU (occurrence: EU)
  Receive Date: 20220907
  Receipt Date: 20251224
  Transmission Date: 20260117
  Serious: Yes (Death, Other)
  Sender: NOVARTIS
  Company Number: None

PATIENT
  Age: 44 Year
  Sex: Female

DRUGS (12)
  1. PANTOPRAZOLE [Suspect]
     Active Substance: PANTOPRAZOLE
     Indication: Product used for unknown indication
     Dosage: UNK
     Route: 042
     Dates: start: 20220414
  2. MICAFUNGIN [Suspect]
     Active Substance: MICAFUNGIN SODIUM
     Indication: Product used for unknown indication
     Dosage: 150 MG, QD
     Route: 042
     Dates: start: 20220215
  3. COTRIMOXAZOLE [Suspect]
     Active Substance: SULFAMETHOXAZOLE\TRIMETHOPRIM
     Indication: Lung transplant
     Dosage: 1 DOSAGE FORM, Q48H
     Route: 048
     Dates: start: 20220414, end: 20220516
  4. GANCICLOVIR [Suspect]
     Active Substance: GANCICLOVIR
     Indication: Cytomegalovirus infection reactivation
     Dosage: 450 MG, QD
     Route: 042
     Dates: start: 20220318, end: 20220518
  5. CELLCEPT [Suspect]
     Active Substance: MYCOPHENOLATE MOFETIL
     Indication: Lung transplant
     Dosage: 500 MG, Q12H (50 COMPRIMIDOS)  COATED TABLET
     Route: 048
     Dates: start: 20220507, end: 20220516
  6. FUROSEMIDE [Suspect]
     Active Substance: FUROSEMIDE
     Indication: Product used for unknown indication
     Dosage: UNK
     Route: 042
     Dates: start: 20220420, end: 20220530
  7. MEROPENEM [Suspect]
     Active Substance: MEROPENEM
     Indication: Product used for unknown indication
     Dosage: 2 G, Q6H TABLET
     Route: 042
     Dates: start: 20220329, end: 20220518
  8. PROGRAF [Suspect]
     Active Substance: TACROLIMUS
     Indication: Lung transplant
     Dosage: UNK (30 CAPSULAS)
     Route: 048
     Dates: start: 20220215
  9. DAPTOMYCIN [Concomitant]
     Active Substance: DAPTOMYCIN
     Indication: Product used for unknown indication
     Dosage: 400 MG, QD
     Route: 042
     Dates: start: 20220303, end: 20220519
  10. ERYTHROCIN LACTOBIONATE [Concomitant]
     Active Substance: ERYTHROMYCIN LACTOBIONATE
     Indication: Antibiotic therapy
     Dosage: 250 MG, Q8H
     Route: 042
     Dates: start: 20220505, end: 20220512
  11. AMBISOME [Concomitant]
     Active Substance: AMPHOTERICIN B
     Indication: Product used for unknown indication
     Dosage: 200 MG, QD (10 VIALS)
     Route: 042
     Dates: start: 20220414, end: 20220519
  12. AMPHOTERICIN B [Concomitant]
     Active Substance: AMPHOTERICIN B
     Indication: Product used for unknown indication
     Dosage: UNK
     Route: 065

REACTIONS (3)
  - Leukopenia [Fatal]
  - Agranulocytosis [Fatal]
  - Neutropenia [Fatal]

NARRATIVE: CASE EVENT DATE: 20220513
